FAERS Safety Report 9399258 (Version 1)
Quarter: 2013Q3

REPORT INFORMATION
  Report Type: Spontaneous
  Country: GB (occurrence: None)
  Receive Date: 20130710
  Receipt Date: 20130710
  Transmission Date: 20140515
  Serious: Yes (Other)
  Sender: FDA-Public Use
  Company Number: 2013AP006428

PATIENT
  Age: 66 Year
  Sex: Female

DRUGS (3)
  1. ALENDRONATE (ALENDRONATE SODIUM) [Suspect]
     Route: 048
     Dates: start: 20030201, end: 20130621
  2. OMEPRAZOLE (OMEPRAZOLE) [Concomitant]
  3. PREDNISOLONE (PREDNISOLONE) [Concomitant]

REACTIONS (2)
  - Arthralgia [None]
  - Femur fracture [None]
